FAERS Safety Report 20152245 (Version 1)
Quarter: 2021Q4

REPORT INFORMATION
  Report Type: Other
  Country: CN (occurrence: None)
  Receive Date: 20211206
  Receipt Date: 20211206
  Transmission Date: 20220303
  Serious: Yes (Other)
  Sender: FDA-Public Use
  Company Number: CN-ROCHE-2966183

PATIENT

DRUGS (1)
  1. CAPECITABINE [Suspect]
     Active Substance: CAPECITABINE
     Indication: Rectal cancer
     Dosage: TABLET, 0.5G
     Route: 048

REACTIONS (7)
  - Myelosuppression [Unknown]
  - Renal impairment [Unknown]
  - Anastomotic haemorrhage [Unknown]
  - Anastomotic leak [Unknown]
  - Postoperative wound infection [Unknown]
  - Intestinal obstruction [Unknown]
  - Pneumonia [Unknown]
